FAERS Safety Report 18587258 (Version 1)
Quarter: 2020Q4

REPORT INFORMATION
  Report Type: Report from Study
  Country: KR (occurrence: KR)
  Receive Date: 20201207
  Receipt Date: 20201207
  Transmission Date: 20210114
  Serious: Yes (Hospitalization)
  Sender: FDA-Public Use
  Company Number: KR-DSJP-DSJ-2020-137377AA

PATIENT
  Age: 47 Year
  Sex: Male
  Weight: 65 kg

DRUGS (5)
  1. NEUROPIA [Concomitant]
     Indication: CEREBRAL HAEMORRHAGE
     Dosage: 1 DF, BID
     Route: 048
     Dates: start: 20180228
  2. OLMESARTAN AMLODIPINE HYDROCHLOROTHIAZIDE [Suspect]
     Active Substance: AMLODIPINE\HYDROCHLOROTHIAZIDE\OLMESARTAN
     Indication: ESSENTIAL HYPERTENSION
     Dosage: 1 DF, QD
     Route: 048
     Dates: start: 20181212
  3. CHOLINE ALFOSCERATE [Concomitant]
     Active Substance: CHOLINE ALFOSCERATE
     Indication: CEREBRAL HAEMORRHAGE
     Dosage: 1 DF, BID
     Route: 048
     Dates: start: 20180702
  4. LEVIROTIN [Concomitant]
     Indication: CEREBRAL HAEMORRHAGE
     Dosage: 1 DF, BID
     Route: 048
     Dates: start: 20180425
  5. ESOMEZOL                           /01479304/ [Concomitant]
     Active Substance: ESOMEPRAZOLE STRONTIUM
     Indication: GASTRITIS PROPHYLAXIS
     Dosage: 1 DF, BID
     Route: 048
     Dates: start: 20171108

REACTIONS (1)
  - Seizure [Recovered/Resolved]

NARRATIVE: CASE EVENT DATE: 20190114
